FAERS Safety Report 8170470-4 (Version None)
Quarter: 2012Q1

REPORT INFORMATION
  Report Type: 
  Country: None (occurrence: None)
  Receive Date: 20120228
  Receipt Date: 20120223
  Transmission Date: 20120608
  Serious: Yes (Other)
  Sender: FDA-Public Use
  Company Number: US-PFIZER INC-2012048760

PATIENT
  Sex: Female
  Weight: 124.7 kg

DRUGS (4)
  1. HYDROCODONE [Concomitant]
     Dosage: UNK
  2. SOMA [Concomitant]
     Dosage: UNK
  3. NAPROXEN (ALEVE) [Concomitant]
     Dosage: UNK
  4. LYRICA [Suspect]
     Indication: FIBROMYALGIA
     Dosage: 300 MG, 1X/DAY
     Route: 048
     Dates: start: 20070101, end: 20100201

REACTIONS (6)
  - IRRITABLE BOWEL SYNDROME [None]
  - BACK DISORDER [None]
  - NERVE COMPRESSION [None]
  - PROCTALGIA [None]
  - WEIGHT INCREASED [None]
  - INTERVERTEBRAL DISC PROTRUSION [None]
